FAERS Safety Report 12140665 (Version 1)
Quarter: 2016Q1

REPORT INFORMATION
  Report Type: Spontaneous
  Country: PT (occurrence: PT)
  Receive Date: 20160303
  Receipt Date: 20160303
  Transmission Date: 20160526
  Serious: Yes (Hospitalization)
  Sender: FDA-Public Use
  Company Number: PT-MEDA-2016020080

PATIENT
  Age: 20 Year
  Sex: Female

DRUGS (2)
  1. MESALAMINE. [Suspect]
     Active Substance: MESALAMINE
     Indication: PROCTITIS ULCERATIVE
     Route: 048
  2. MESALAMINE. [Suspect]
     Active Substance: MESALAMINE
     Indication: PROCTITIS ULCERATIVE
     Route: 061

REACTIONS (1)
  - Myocarditis [Recovered/Resolved]
